FAERS Safety Report 4991906-3 (Version None)
Quarter: 2006Q2

REPORT INFORMATION
  Report Type: 
  Country: None (occurrence: None)
  Receive Date: 20060504
  Receipt Date: 20060105
  Transmission Date: 20061013
  Serious: Yes (Hospitalization, Disabling)
  Sender: FDA-Public Use
  Company Number: US-MERCK-0601USA00529

PATIENT
  Age: 80 Year
  Sex: Female
  Weight: 75 kg

DRUGS (3)
  1. VIOXX [Suspect]
     Indication: ARTHRALGIA
     Route: 048
     Dates: start: 20000701, end: 20040401
  2. NEURONTIN [Concomitant]
     Indication: HERPES ZOSTER
     Route: 048
  3. NEURONTIN [Concomitant]
     Indication: PAIN
     Route: 048

REACTIONS (20)
  - CEREBRAL INFARCTION [None]
  - CEREBROVASCULAR ACCIDENT [None]
  - CERVICAL SPINAL STENOSIS [None]
  - CHEST PAIN [None]
  - CHOLECYSTECTOMY [None]
  - CHOLELITHIASIS [None]
  - CORONARY ARTERY DISEASE [None]
  - DEHYDRATION [None]
  - DIZZINESS [None]
  - DYSPNOEA [None]
  - GASTROINTESTINAL HAEMORRHAGE [None]
  - HERPES VIRUS INFECTION [None]
  - HYPOVOLAEMIA [None]
  - LUNG INFILTRATION [None]
  - NAUSEA [None]
  - ORTHOSTATIC HYPOTENSION [None]
  - PAIN IN EXTREMITY [None]
  - POST HERPETIC NEURALGIA [None]
  - SPINAL OSTEOARTHRITIS [None]
  - WHITE BLOOD CELL COUNT INCREASED [None]
